FAERS Safety Report 5959392-4 (Version None)
Quarter: 2008Q4

REPORT INFORMATION
  Report Type: 
  Country: None (occurrence: None)
  Receive Date: 20081120
  Receipt Date: 20080729
  Transmission Date: 20090506
  Serious: No
  Sender: FDA-Public Use
  Company Number: A0739893A

PATIENT
  Age: 60 Year
  Sex: Male

DRUGS (4)
  1. VERAMYST [Suspect]
     Indication: LARYNGEAL INJURY
     Dosage: 1SPR PER DAY
     Route: 045
     Dates: start: 20080722
  2. ALLEGRA-D [Concomitant]
  3. LEVOTHYROXINE SODIUM [Concomitant]
  4. LOVAZA [Concomitant]

REACTIONS (2)
  - OROPHARYNGEAL PAIN [None]
  - PARAESTHESIA [None]
